FAERS Safety Report 4724379-6 (Version None)
Quarter: 2005Q3

REPORT INFORMATION
  Report Type: 
  Country: None (occurrence: None)
  Receive Date: 20050722
  Receipt Date: 20050713
  Transmission Date: 20060218
  Serious: Yes (Life-Threatening, Other)
  Sender: FDA-Public Use
  Company Number: HQWYE217514JUL05

PATIENT
  Age: 33 Year
  Sex: Female

DRUGS (1)
  1. CORDARONE [Suspect]
     Indication: SUPRAVENTRICULAR TACHYCARDIA
     Dosage: 150 MG X 1 INTRAVENOUS
     Route: 042
     Dates: start: 20050629, end: 20050629

REACTIONS (2)
  - PHARYNGEAL OEDEMA [None]
  - RASH ERYTHEMATOUS [None]
